FAERS Safety Report 13949083 (Version 1)
Quarter: 2017Q3

REPORT INFORMATION
  Report Type: Report from Study
  Country: US (occurrence: FR)
  Receive Date: 20170908
  Receipt Date: 20170908
  Transmission Date: 20171128
  Serious: Yes (Death, Hospitalization)
  Sender: FDA-Public Use
  Company Number: PHHO2005FR022026

PATIENT
  Age: 82 Year
  Sex: Male

DRUGS (6)
  1. PNEUMOREL [Concomitant]
     Active Substance: FENSPIRIDE HYDROCHLORIDE
     Indication: BRONCHITIS
     Route: 065
     Dates: start: 20041201, end: 20050307
  2. CIFLOX [Concomitant]
     Active Substance: CIPROFLOXACIN
     Indication: BRONCHITIS
     Route: 065
     Dates: start: 20050118
  3. DETENSIEL [Concomitant]
     Active Substance: BISOPROLOL FUMARATE
     Indication: HYPERTENSION
     Route: 065
  4. OFATUMUMAB [Suspect]
     Active Substance: OFATUMUMAB
     Indication: CHRONIC LYMPHOCYTIC LEUKAEMIA
     Dosage: OT
     Route: 042
     Dates: start: 20050203, end: 20050224
  5. AUGMENTIN [Concomitant]
     Active Substance: AMOXICILLIN\CLAVULANATE POTASSIUM
     Indication: BRONCHITIS
     Route: 065
     Dates: start: 20040118, end: 20050304
  6. ZITROMAX [Concomitant]
     Active Substance: AZITHROMYCIN
     Indication: BRONCHITIS
     Route: 065
     Dates: start: 20041202, end: 20050307

REACTIONS (1)
  - Interstitial lung disease [Fatal]

NARRATIVE: CASE EVENT DATE: 20050304
